FAERS Safety Report 9685870 (Version 1)
Quarter: 2013Q4

REPORT INFORMATION
  Report Type: Spontaneous
  Country: US (occurrence: US)
  Receive Date: 20131113
  Receipt Date: 20131113
  Transmission Date: 20140711
  Serious: Yes (Other)
  Sender: FDA-Public Use
  Company Number: US-RB-059586-13

PATIENT
  Age: 6 Year
  Sex: Female

DRUGS (1)
  1. CHILDRENS MUCINEX COUGH [Suspect]
     Indication: PRODUCT USED FOR UNKNOWN INDICATION
     Route: 048
     Dates: start: 20131016

REACTIONS (6)
  - Atypical pneumonia [Recovered/Resolved]
  - Tachyphrenia [Recovered/Resolved]
  - Confusional state [Recovered/Resolved]
  - Fear [Recovered/Resolved]
  - Cough [Recovered/Resolved]
  - Vomiting [Recovered/Resolved]
